FAERS Safety Report 14870831 (Version 1)
Quarter: 2018Q2

REPORT INFORMATION
  Report Type: Spontaneous
  Country: US (occurrence: US)
  Receive Date: 20180509
  Receipt Date: 20180509
  Transmission Date: 20180711
  Serious: Yes (Hospitalization, Other)
  Sender: FDA-Public Use
  Company Number: US-TEVA-2018-US-890345

PATIENT
  Age: 9 Decade
  Sex: Male

DRUGS (3)
  1. PREDNISONE. [Suspect]
     Active Substance: PREDNISONE
     Dosage: 20 MILLIGRAM DAILY;
     Route: 048
  2. AMIODARONE [Suspect]
     Active Substance: AMIODARONE
     Route: 065
  3. PREDNISONE. [Suspect]
     Active Substance: PREDNISONE
     Indication: INTERSTITIAL LUNG DISEASE
     Dosage: 60 MILLIGRAM DAILY;
     Route: 048

REACTIONS (6)
  - Infection [Unknown]
  - Interstitial lung disease [Unknown]
  - Mycobacterium chelonae infection [Unknown]
  - Necrosis [Unknown]
  - Synovitis [Unknown]
  - Osteomyelitis [Unknown]
